FAERS Safety Report 23247784 (Version 1)
Quarter: 2023Q4

REPORT INFORMATION
  Report Type: Spontaneous
  Country: US (occurrence: US)
  Receive Date: 20231130
  Receipt Date: 20231130
  Transmission Date: 20240110
  Serious: Yes (Other)
  Sender: FDA-Public Use
  Company Number: US-BEH-2023165878

PATIENT
  Sex: Female

DRUGS (4)
  1. HUMATE-P [Suspect]
     Active Substance: HUMAN COAGULATION FACTOR VIII/VON WILLEBRAND FACTOR COMPLEX
     Indication: Von Willebrand^s disease
     Dosage: 3000 INTERNATIONAL UNIT, THE DAY PRIOR TO PROCEDURE, 2 HRS PRIOR TO PROCEDURE AND EVERY 6 HRS X 48 H
     Route: 042
     Dates: start: 202010
  2. HUMATE-P [Suspect]
     Active Substance: HUMAN COAGULATION FACTOR VIII/VON WILLEBRAND FACTOR COMPLEX
     Indication: Haemorrhage
     Dosage: 3000 INTERNATIONAL UNIT, PRN
     Route: 042
     Dates: start: 202010
  3. SODIUM CHLORIDE [Concomitant]
     Active Substance: SODIUM CHLORIDE
  4. HEPARIN LOCK FLUSH [Concomitant]
     Active Substance: HEPARIN SODIUM

REACTIONS (1)
  - Haemarthrosis [Unknown]
